FAERS Safety Report 9224596 (Version 1)
Quarter: 2013Q1

REPORT INFORMATION
  Report Type: Spontaneous
  Country: US (occurrence: None)
  Receive Date: 20120914
  Receipt Date: 20120914
  Transmission Date: 20140127
  Serious: Yes (Other)
  Sender: FDA-Public Use
  Company Number: JPI-P-020091

PATIENT
  Age: 40 Year
  Sex: Male

DRUGS (4)
  1. XYREM [Suspect]
  2. COCAINE [Suspect]
     Indication: NARCOLEPSY
     Route: 048
     Dates: start: 20110818
  3. AMPHETAMINES [Suspect]
  4. MARIJUANA [Suspect]

REACTIONS (2)
  - Substance abuse [None]
  - Hallucination [None]
